FAERS Safety Report 8002665-4 (Version None)
Quarter: 2011Q4

REPORT INFORMATION
  Report Type: 
  Country: None (occurrence: None)
  Receive Date: 20111222
  Receipt Date: 20111214
  Transmission Date: 20120403
  Serious: Yes (Other)
  Sender: FDA-Public Use
  Company Number: GB-NOVOPROD-341435

PATIENT

DRUGS (1)
  1. LEVEMIR [Suspect]
     Indication: TYPE 1 DIABETES MELLITUS
     Dosage: UNK
     Route: 058
     Dates: start: 20110201, end: 20111114

REACTIONS (4)
  - ABDOMINAL PAIN [None]
  - FLUID RETENTION [None]
  - DYSPNOEA [None]
  - ABDOMINAL DISTENSION [None]
